FAERS Safety Report 4844767-7 (Version None)
Quarter: 2005Q4

REPORT INFORMATION
  Report Type: 
  Country: None (occurrence: None)
  Receive Date: 20051125
  Receipt Date: 20051111
  Transmission Date: 20060501
  Serious: Yes (Death, Hospitalization)
  Sender: FDA-Public Use
  Company Number: GB200511000193

PATIENT
  Age: 64 Year
  Sex: Female

DRUGS (5)
  1. CYMBALTA [Suspect]
     Dosage: 60 MG
     Dates: start: 20050701
  2. LITHIUM CARBONATE [Concomitant]
  3. THYROXNE SODIUM (LEVOTHYROXINE SODIUM) [Concomitant]
  4. ASPIRIN [Concomitant]
  5. VENLAFAXINE HCL [Concomitant]

REACTIONS (3)
  - BLOOD PRESSURE DECREASED [None]
  - HEART RATE DECREASED [None]
  - MYOCARDIAL INFARCTION [None]
